FAERS Safety Report 7466438-3 (Version None)
Quarter: 2011Q2

REPORT INFORMATION
  Report Type: 
  Country: None (occurrence: None)
  Receive Date: 20110509
  Receipt Date: 20100722
  Transmission Date: 20111010
  Serious: No
  Sender: FDA-Public Use
  Company Number: US-ALEXION-A201000860

PATIENT
  Sex: Female
  Weight: 99.773 kg

DRUGS (21)
  1. VITAMIN C                          /00008001/ [Concomitant]
     Dosage: 500 MG, TID
     Route: 048
  2. CYMBALTA [Concomitant]
     Dosage: 60 MG, QD
     Route: 048
  3. EVENING PRIMROSE OIL               /01332402/ [Concomitant]
     Dosage: 1300 MG, QD
     Route: 048
  4. SOLIRIS [Suspect]
     Dosage: 900 MG, Q2W
     Route: 042
     Dates: start: 20100427, end: 20100701
  5. TYLENOL (CAPLET) [Concomitant]
     Dosage: 1 TABLET, QID, PRN
  6. FOLBIC [Concomitant]
     Dosage: 400 MG, QD
     Route: 048
  7. GLUCOSAMINE /CHOND                 /03040701/ [Concomitant]
     Dosage: 1 TAB, QD
     Route: 048
  8. XANAX [Concomitant]
     Dosage: 100 MG, BID
  9. L-LYSINE                           /00919901/ [Concomitant]
     Dosage: 500 MG, QID
     Route: 048
  10. COUMADIN [Concomitant]
     Dosage: UNK
     Route: 048
  11. IRON [Concomitant]
     Dosage: 1 TABLET
     Route: 048
  12. MONODOX                            /00055705/ [Concomitant]
     Dosage: 100 MG, BID
     Route: 048
  13. K-DUR [Concomitant]
     Dosage: 20 MEQ, QD
     Route: 048
  14. EMLA [Concomitant]
     Dosage: UNK
     Route: 061
  15. VALTREX [Concomitant]
     Dosage: 1000 MG, PRN
     Route: 048
  16. HYDROCHLOROTHIAZIDE [Concomitant]
     Dosage: 25 MG, QD
     Route: 048
  17. WELLBUTRIN [Concomitant]
     Dosage: 150 MG, BID
     Route: 048
  18. SOLIRIS [Suspect]
     Indication: PAROXYSMAL NOCTURNAL HAEMOGLOBINURIA
     Dosage: 600 MG, QW X 4 WEEKS
     Route: 042
     Dates: start: 20100330, end: 20100401
  19. SOLIRIS [Suspect]
     Dosage: 900 MG, Q2W
     Route: 042
     Dates: start: 20100803
  20. CALTRATE PLUS                      /01438001/ [Concomitant]
     Dosage: UNK
     Route: 048
  21. SOLIRIS [Suspect]
     Dosage: 1200 MG, SINGLE
     Route: 042
     Dates: start: 20100720, end: 20100720

REACTIONS (9)
  - FLUSHING [None]
  - MELAENA [None]
  - CONTUSION [None]
  - VARICES OESOPHAGEAL [None]
  - FEELING HOT [None]
  - NAUSEA [None]
  - WAIST CIRCUMFERENCE INCREASED [None]
  - FATIGUE [None]
  - HAEMOLYSIS [None]
